FAERS Safety Report 7486368-0 (Version None)
Quarter: 2011Q2

REPORT INFORMATION
  Report Type: 
  Country: None (occurrence: None)
  Receive Date: 20110516
  Receipt Date: 20110516
  Transmission Date: 20111010
  Serious: Yes (Hospitalization)
  Sender: FDA-Public Use
  Company Number: None

PATIENT
  Age: 83 Year
  Sex: Male
  Weight: 66.3 kg

DRUGS (1)
  1. MEMANTINE [Suspect]
     Dosage: 5 MG BID PO
     Route: 048
     Dates: start: 20110406, end: 20110422

REACTIONS (2)
  - CONFUSIONAL STATE [None]
  - DIARRHOEA [None]
